FAERS Safety Report 4680805-2 (Version None)
Quarter: 2005Q2

REPORT INFORMATION
  Report Type: 
  Country: None (occurrence: None)
  Receive Date: 20050601
  Receipt Date: 20050518
  Transmission Date: 20051028
  Serious: Yes (Hospitalization)
  Sender: FDA-Public Use
  Company Number: THQ2005A00484

PATIENT
  Age: 53 Year
  Sex: Female

DRUGS (8)
  1. ACTOS [Suspect]
     Indication: DIABETES MELLITUS
     Dosage: 30 MG (30 MG, 1 IN 1 D)
     Route: 048
     Dates: start: 20030301
  2. METFORMIN HCL [Concomitant]
  3. METOPROLOL TARTRATE [Concomitant]
  4. HYDROCHLOROTHIAZIDE [Concomitant]
  5. CAPTOPRIL [Concomitant]
  6. GEMFIBROZIL [Concomitant]
  7. SIMVASTATIN [Concomitant]
  8. INSULIN [Concomitant]

REACTIONS (1)
  - FAT TISSUE INCREASED [None]
